FAERS Safety Report 5269977-9 (Version None)
Quarter: 2007Q1

REPORT INFORMATION
  Report Type: 
  Country: None (occurrence: None)
  Receive Date: 20070320
  Receipt Date: 20070314
  Transmission Date: 20070707
  Serious: Yes (Other)
  Sender: FDA-Public Use
  Company Number: CA-JNJFOC-20070303584

PATIENT
  Sex: Female

DRUGS (4)
  1. REMICADE [Suspect]
     Indication: RHEUMATOID ARTHRITIS
     Route: 042
  2. STEROIDS [Concomitant]
  3. METHOTREXATE [Concomitant]
  4. PLAQUINOL [Concomitant]

REACTIONS (1)
  - MYCOBACTERIAL INFECTION [None]
